FAERS Safety Report 7583696-5 (Version None)
Quarter: 2011Q2

REPORT INFORMATION
  Report Type: 
  Country: None (occurrence: None)
  Receive Date: 20110630
  Receipt Date: 20110621
  Transmission Date: 20111010
  Serious: Yes (Hospitalization)
  Sender: FDA-Public Use
  Company Number: B0721375A

PATIENT
  Sex: Male

DRUGS (8)
  1. VALPROATE SODIUM [Concomitant]
     Indication: EPILEPSY
     Dosage: 300MG PER DAY
     Route: 048
     Dates: start: 20110315
  2. TEGRETOL [Concomitant]
     Dosage: 1.8MG PER DAY
     Route: 048
  3. ARTANE [Concomitant]
     Dosage: 2MG PER DAY
     Route: 048
  4. RISPERDAL [Concomitant]
     Dosage: 4MG PER DAY
     Route: 048
  5. LAMICTAL [Suspect]
     Indication: EPILEPSY
     Dosage: 25MG PER DAY
     Route: 048
     Dates: start: 20110308, end: 20110315
  6. DEPAKENE [Concomitant]
     Dosage: 72ML PER DAY
     Route: 048
  7. FERROUS SULFATE TAB [Concomitant]
     Dosage: 1IUAX PER DAY
     Route: 048
  8. DIAPP [Concomitant]
     Indication: EPILEPSY
     Dosage: 6MG PER DAY
     Route: 054
     Dates: start: 20110314

REACTIONS (4)
  - THROMBOCYTOPENIA [None]
  - HAEMATOCRIT DECREASED [None]
  - RED BLOOD CELL COUNT DECREASED [None]
  - ANAEMIA [None]
